FAERS Safety Report 6188048-0 (Version None)
Quarter: 2009Q2

REPORT INFORMATION
  Report Type: 
  Country: None (occurrence: None)
  Receive Date: 20090513
  Receipt Date: 20090501
  Transmission Date: 20091009
  Serious: Yes (Death)
  Sender: FDA-Public Use
  Company Number: DE-BAXTER-2009BH008219

PATIENT
  Age: 83 Year

DRUGS (5)
  1. IFOSFAMIDE [Suspect]
     Indication: CENTRAL NERVOUS SYSTEM LYMPHOMA
     Dosage: DOSE UNIT:GRAMS PER METERS SQUARED
     Route: 042
  2. METHOTREXATE [Suspect]
     Indication: CENTRAL NERVOUS SYSTEM LYMPHOMA
     Dosage: DOSE UNIT:GRAMS PER METERS SQUARED
     Route: 042
  3. ANTIEMETICS AND ANTINAUSEANTS [Concomitant]
     Indication: PROPHYLAXIS OF NAUSEA AND VOMITING
     Route: 065
  4. MESNA [Concomitant]
     Indication: DRUG USE FOR UNKNOWN INDICATION
     Route: 065
  5. LEUCOVORIN CALCIUM [Concomitant]
     Indication: DRUG USE FOR UNKNOWN INDICATION
     Route: 065

REACTIONS (1)
  - NEUTROPENIC SEPSIS [None]
